FAERS Safety Report 7111347-2 (Version None)
Quarter: 2010Q4

REPORT INFORMATION
  Report Type: 
  Country: None (occurrence: None)
  Receive Date: 20101118
  Receipt Date: 20101108
  Transmission Date: 20110411
  Serious: Yes (Hospitalization)
  Sender: FDA-Public Use
  Company Number: US-PURDUE-USA-2010-0047396

PATIENT
  Sex: Female

DRUGS (3)
  1. OXYCONTIN [Suspect]
     Indication: PAIN
     Dosage: 120 MG, Q6H
     Dates: start: 20100823
  2. OXYCONTIN [Suspect]
     Indication: DIABETIC NEUROPATHY
     Dosage: 80 MG, Q4H
     Dates: start: 20100823
  3. OXYCONTIN [Suspect]
     Dosage: 160 MG, NOCTE
     Dates: start: 20100823

REACTIONS (7)
  - DRUG EFFECT DECREASED [None]
  - FOREIGN BODY [None]
  - HYPERTENSION [None]
  - NAUSEA [None]
  - PAIN [None]
  - TREMOR [None]
  - VOMITING [None]
